FAERS Safety Report 18634639 (Version 1)
Quarter: 2020Q4

REPORT INFORMATION
  Report Type: Spontaneous
  Country: US (occurrence: US)
  Receive Date: 20201218
  Receipt Date: 20201218
  Transmission Date: 20210114
  Serious: No
  Sender: FDA-Public Use
  Company Number: US-BAYER-2020-280290

PATIENT
  Age: 77 Year
  Sex: Female

DRUGS (2)
  1. ALEVE [Suspect]
     Active Substance: NAPROXEN SODIUM
     Indication: PAIN
     Dosage: 1 AND A HALF DF, QD
     Route: 048
  2. VITAMIN 15 [Concomitant]

REACTIONS (1)
  - Incorrect dose administered [Unknown]
